FAERS Safety Report 8819124 (Version 1)
Quarter: 2012Q4

REPORT INFORMATION
  Report Type: 
  Country: US (occurrence: US)
  Receive Date: 20121002
  Receipt Date: 20121002
  Transmission Date: 20130627
  Serious: Yes (Other)
  Sender: FDA-Public Use
  Company Number: US-PFIZER INC-2012239106

PATIENT

DRUGS (1)
  1. BENEFIX [Suspect]
     Dosage: UNK
     Route: 042

REACTIONS (1)
  - Rash [Unknown]
